FAERS Safety Report 6521374-1 (Version None)
Quarter: 2009Q4

REPORT INFORMATION
  Report Type: 
  Country: None (occurrence: None)
  Receive Date: 20091230
  Receipt Date: 20091218
  Transmission Date: 20100525
  Serious: Yes (Life-Threatening)
  Sender: FDA-Public Use
  Company Number: DE-JNJFOC-20090709549

PATIENT
  Age: 28 Year
  Sex: Female

DRUGS (15)
  1. REMICADE [Suspect]
     Route: 042
  2. REMICADE [Suspect]
     Route: 042
  3. REMICADE [Suspect]
     Indication: RHEUMATOID ARTHRITIS
     Route: 042
  4. METHOTREXATE [Suspect]
     Route: 048
  5. METHOTREXATE [Suspect]
     Route: 048
  6. METHOTREXATE [Suspect]
     Route: 048
  7. METHOTREXATE [Suspect]
     Indication: RHEUMATOID ARTHRITIS
     Route: 048
  8. PHENPROCOUMON [Concomitant]
  9. BELOC ZOK [Concomitant]
  10. CALCIUM [Concomitant]
  11. OMEPRAZOLE [Concomitant]
  12. TILIDIN [Concomitant]
  13. PREDNISOLONE [Concomitant]
     Route: 048
  14. METAMIZOLE [Concomitant]
  15. TORSEMIDE [Concomitant]
     Route: 048

REACTIONS (3)
  - ANGIOEDEMA [None]
  - INFECTED SKIN ULCER [None]
  - INFUSION RELATED REACTION [None]
